FAERS Safety Report 25486999 (Version 1)
Quarter: 2025Q2

REPORT INFORMATION
  Report Type: Spontaneous
  Country: CA (occurrence: CA)
  Receive Date: 20250627
  Receipt Date: 20250627
  Transmission Date: 20250716
  Serious: Yes (Life-Threatening, Hospitalization, Other)
  Sender: CELLTRION
  Company Number: CA-CELLTRION INC.-2025CA019910

PATIENT

DRUGS (8)
  1. USTEKINUMAB [Suspect]
     Active Substance: USTEKINUMAB
     Indication: Product used for unknown indication
  2. ASPIRIN [Concomitant]
     Active Substance: ASPIRIN
     Route: 065
  3. ESCITALOPRAM [Concomitant]
     Active Substance: ESCITALOPRAM OXALATE
  4. PERINDOPRIL [Concomitant]
     Active Substance: PERINDOPRIL
  5. PREDNISOLONE [Concomitant]
     Active Substance: PREDNISOLONE
  6. PREDNISONE [Concomitant]
     Active Substance: PREDNISONE
  7. ROSUVASTATIN [Concomitant]
     Active Substance: ROSUVASTATIN
     Route: 065
  8. TINZAPARIN [Concomitant]
     Active Substance: TINZAPARIN

REACTIONS (5)
  - Anastomotic leak [Recovering/Resolving]
  - Large intestine perforation [Recovering/Resolving]
  - Colectomy [Recovering/Resolving]
  - Proctectomy [Recovering/Resolving]
  - Abscess [Recovering/Resolving]
